FAERS Safety Report 8968962 (Version 1)
Quarter: 2012Q4

REPORT INFORMATION
  Report Type: Spontaneous
  Country: CN (occurrence: None)
  Receive Date: 20121210
  Receipt Date: 20121210
  Transmission Date: 20130627
  Serious: Yes (Other)
  Sender: FDA-Public Use
  Company Number: VAL_01164_2012

PATIENT
  Age: 70 Year
  Sex: Male

DRUGS (1)
  1. LOTENSIN [Suspect]
     Indication: BLOOD PRESSURE INCREASED
     Dosage: Intravenous (not otherwise specified))
     Route: 042
     Dates: start: 20110420, end: 20110506

REACTIONS (1)
  - Agranulocytosis [None]
